FAERS Safety Report 5643419-3 (Version None)
Quarter: 2008Q1

REPORT INFORMATION
  Report Type: 
  Country: None (occurrence: None)
  Receive Date: 20080228
  Receipt Date: 20080214
  Transmission Date: 20080703
  Serious: Yes (Other)
  Sender: FDA-Public Use
  Company Number: IE-ELI_LILLY_AND_COMPANY-IE200802004029

PATIENT
  Sex: Male
  Weight: 43 kg

DRUGS (4)
  1. STRATTERA [Suspect]
     Dosage: 18 MG, UNKNOWN
     Dates: start: 20070601
  2. STRATTERA [Suspect]
     Dosage: 50 MG, UNKNOWN
     Dates: start: 20070801
  3. STRATTERA [Suspect]
     Dosage: 40 MG, UNKNOWN
     Dates: start: 20080201
  4. RISPERIDONE [Concomitant]
     Dosage: UNK, UNKNOWN
     Dates: start: 20070901, end: 20071201

REACTIONS (1)
  - WEIGHT DECREASED [None]
